FAERS Safety Report 19026076 (Version 4)
Quarter: 2021Q3

REPORT INFORMATION
  Report Type: Spontaneous
  Country: DE (occurrence: DE)
  Receive Date: 20210318
  Receipt Date: 20210805
  Transmission Date: 20211014
  Serious: Yes (Other)
  Sender: FDA-Public Use
  Company Number: NVSC2021DE053435

PATIENT
  Age: 56 Year
  Sex: Female
  Weight: 68 kg

DRUGS (20)
  1. DEXAMETHASONE. [Suspect]
     Active Substance: DEXAMETHASONE
     Indication: PREMEDICATION
     Dosage: 100 MG
     Route: 042
     Dates: start: 20180813
  2. OCRELIZUMAB. [Suspect]
     Active Substance: OCRELIZUMAB
     Dosage: 600 MG, 6 MONTHS
     Route: 042
     Dates: start: 20190211
  3. OCRELIZUMAB. [Suspect]
     Active Substance: OCRELIZUMAB
     Dosage: 600 MG, 6 MONTHS
     Route: 042
     Dates: start: 20210208
  4. METHYLPREDNISOLONE. [Concomitant]
     Active Substance: METHYLPREDNISOLONE
     Dosage: 100 MG, BIW
     Route: 042
     Dates: start: 20180730
  5. NOVOTHYRAL [Concomitant]
     Active Substance: LEVOTHYROXINE SODIUM\LIOTHYRONINE SODIUM
     Indication: HYPOTHYROIDISM
     Dosage: 75 UG,QD
     Route: 048
  6. OCRELIZUMAB. [Suspect]
     Active Substance: OCRELIZUMAB
     Dosage: 300 MG, BIW
     Route: 042
     Dates: start: 20180813
  7. DEXAMETHASONE. [Suspect]
     Active Substance: DEXAMETHASONE
     Indication: PRIMARY PROGRESSIVE MULTIPLE SCLEROSIS
     Dosage: 100 MG (FORMULATION:INFUSION, SOLUTION)
     Route: 042
     Dates: start: 20180730
  8. METHYLPREDNISOLONE. [Concomitant]
     Active Substance: METHYLPREDNISOLONE
     Indication: PRODUCT USED FOR UNKNOWN INDICATION
     Dosage: 100 MG, 6 MONTHS (START DATE UNKNOWN)
     Route: 042
  9. OCRELIZUMAB. [Suspect]
     Active Substance: OCRELIZUMAB
     Dosage: 600 MG, 6 MONTHS
     Route: 042
     Dates: start: 202008
  10. MYOPRIDIN [Concomitant]
     Indication: PRODUCT USED FOR UNKNOWN INDICATION
     Dosage: UNK (START DATE WAS UNKNOWN)
     Route: 065
  11. FAMPYRA [Concomitant]
     Active Substance: DALFAMPRIDINE
     Indication: PRODUCT USED FOR UNKNOWN INDICATION
     Dosage: UNK
     Route: 065
  12. CETIXIN [Concomitant]
     Indication: PREMEDICATION
     Dosage: 10 MG, 6 MONTH
     Route: 048
     Dates: start: 20180730
  13. LENZETTO [Concomitant]
     Active Substance: ESTRADIOL
     Indication: OESTROGEN DEFICIENCY
     Dosage: 1.53 MG, QD
     Route: 048
  14. DEXAMETHASONE. [Suspect]
     Active Substance: DEXAMETHASONE
     Indication: RELAPSING MULTIPLE SCLEROSIS
     Dosage: 100 MG
     Route: 042
     Dates: start: 202008
  15. DEXAMETHASONE. [Suspect]
     Active Substance: DEXAMETHASONE
     Dosage: 100 MG
     Route: 042
     Dates: start: 20210208, end: 20210208
  16. OCRELIZUMAB. [Suspect]
     Active Substance: OCRELIZUMAB
     Indication: PRIMARY PROGRESSIVE MULTIPLE SCLEROSIS
     Dosage: 300 MG, BIW
     Route: 042
     Dates: start: 20180730, end: 20180813
  17. CETIRIZIN [Concomitant]
     Active Substance: CETIRIZINE HYDROCHLORIDE
     Indication: PREMEDICATION
     Dosage: 10 MG, 6 MONTH
     Route: 048
     Dates: start: 20180730
  18. DEXAMETHASONE. [Suspect]
     Active Substance: DEXAMETHASONE
     Dosage: UNK
  19. CETIXIN [Concomitant]
     Dosage: UNK
     Route: 065
  20. FENISTIL [Concomitant]
     Active Substance: DIMETHINDENE
     Indication: PRODUCT USED FOR UNKNOWN INDICATION
     Dosage: UNK (TREATMENT DATE: 13 AUG 2018, AUG 2020 AND 08 FEB 2021)
     Route: 042
     Dates: start: 20180730

REACTIONS (29)
  - Multiple sclerosis [Unknown]
  - Myalgia [Recovered/Resolved]
  - Product prescribing error [Unknown]
  - Nasopharyngitis [Recovered/Resolved]
  - Visual impairment [Recovered/Resolved]
  - Sleep disorder [Recovered/Resolved]
  - Abdominal discomfort [Not Recovered/Not Resolved]
  - Muscular weakness [Not Recovered/Not Resolved]
  - Asthenia [Recovered/Resolved]
  - Erythema [Recovered/Resolved]
  - Fatigue [Recovered/Resolved]
  - Gait disturbance [Unknown]
  - Product administration error [Unknown]
  - Throat irritation [Recovered/Resolved]
  - Hyperhidrosis [Recovered/Resolved]
  - Disturbance in attention [Recovered/Resolved]
  - Dizziness [Recovered/Resolved]
  - Tachycardia [Not Recovered/Not Resolved]
  - Tremor [Recovered/Resolved]
  - Palpitations [Not Recovered/Not Resolved]
  - Flushing [Not Recovered/Not Resolved]
  - Swelling face [Recovered/Resolved]
  - Headache [Not Recovered/Not Resolved]
  - Burning sensation [Recovered/Resolved]
  - Fatigue [Not Recovered/Not Resolved]
  - Nasopharyngitis [Not Recovered/Not Resolved]
  - Heart rate increased [Recovered/Resolved]
  - Paraesthesia [Recovered/Resolved]
  - Secretion discharge [Recovered/Resolved]

NARRATIVE: CASE EVENT DATE: 202102
